FAERS Safety Report 6968611-7 (Version None)
Quarter: 2010Q3

REPORT INFORMATION
  Report Type: 
  Country: None (occurrence: None)
  Receive Date: 20100903
  Receipt Date: 20100903
  Transmission Date: 20110219
  Serious: No
  Sender: FDA-Public Use
  Company Number: None

PATIENT
  Sex: Female
  Weight: 105.2345 kg

DRUGS (2)
  1. WELLBUTRIN SR [Suspect]
     Indication: ANXIETY
  2. WELLBUTRIN SR [Suspect]
     Indication: DEPRESSION

REACTIONS (1)
  - ABDOMINAL PAIN [None]
